FAERS Safety Report 20748180 (Version 1)
Quarter: 2022Q2

REPORT INFORMATION
  Report Type: Report from Study
  Country: US (occurrence: US)
  Receive Date: 20220426
  Receipt Date: 20220426
  Transmission Date: 20220720
  Serious: Yes (Other)
  Sender: FDA-Public Use
  Company Number: US-ABBVIE-21K-163-4080935-00

PATIENT
  Sex: Male

DRUGS (3)
  1. HUMIRA [Suspect]
     Active Substance: ADALIMUMAB
     Indication: Psoriatic arthropathy
     Route: 058
     Dates: start: 20210903, end: 2021
  2. HUMIRA [Suspect]
     Active Substance: ADALIMUMAB
     Route: 058
     Dates: start: 20211209
  3. HUMIRA [Suspect]
     Active Substance: ADALIMUMAB
     Route: 058

REACTIONS (16)
  - Urinary tract obstruction [Unknown]
  - Blood folate decreased [Unknown]
  - General physical health deterioration [Unknown]
  - Dizziness [Unknown]
  - Fatigue [Unknown]
  - Euphoric mood [Unknown]
  - Inflammation [Recovered/Resolved]
  - Skin disorder [Unknown]
  - Inflammation [Unknown]
  - Sleep disorder [Unknown]
  - Adverse drug reaction [Unknown]
  - Psoriasis [Recovering/Resolving]
  - Abdominal discomfort [Unknown]
  - Oral herpes [Unknown]
  - Psoriatic arthropathy [Unknown]
  - Injection site discomfort [Unknown]

NARRATIVE: CASE EVENT DATE: 20210101
